FAERS Safety Report 25665541 (Version 1)
Quarter: 2025Q3

REPORT INFORMATION
  Report Type: Spontaneous
  Country: CA (occurrence: CA)
  Receive Date: 20250811
  Receipt Date: 20250811
  Transmission Date: 20251021
  Serious: Yes (Death)
  Sender: DR REDDYS
  Company Number: None

PATIENT
  Age: 65 Year
  Sex: Male

DRUGS (31)
  1. AZACITIDINE [Suspect]
     Active Substance: AZACITIDINE
     Indication: Acute myeloid leukaemia
     Route: 065
  2. AZACITIDINE [Suspect]
     Active Substance: AZACITIDINE
     Route: 065
  3. VENETOCLAX [Suspect]
     Active Substance: VENETOCLAX
     Indication: Acute myeloid leukaemia
     Route: 048
  4. VENETOCLAX [Suspect]
     Active Substance: VENETOCLAX
     Route: 048
  5. VENETOCLAX [Suspect]
     Active Substance: VENETOCLAX
     Route: 048
  6. VENETOCLAX [Suspect]
     Active Substance: VENETOCLAX
     Route: 048
  7. ALLOPURINOL [Concomitant]
     Active Substance: ALLOPURINOL
     Indication: Prophylaxis
     Route: 048
  8. ASPIRIN [Concomitant]
     Active Substance: ASPIRIN
     Indication: Portal vein thrombosis
     Route: 048
  9. CIPROFLOXACIN LACTATE [Concomitant]
     Active Substance: CIPROFLOXACIN LACTATE
     Indication: Infection prophylaxis
     Route: 048
  10. COVID-19 VACCINE MRNA [Concomitant]
     Indication: COVID-19 immunisation
     Route: 030
  11. FLUCONAZOLE [Concomitant]
     Active Substance: FLUCONAZOLE
     Indication: Infection prophylaxis
     Route: 048
  12. FLUCONAZOLE [Concomitant]
     Active Substance: FLUCONAZOLE
     Indication: Infection prophylaxis
     Route: 048
  13. GRAVOL [Concomitant]
     Active Substance: DIMENHYDRINATE
     Indication: Nausea
     Route: 048
  14. HYDROMORPHONE [Concomitant]
     Active Substance: HYDROMORPHONE
     Indication: Pain
     Route: 042
  15. HYDROMORPHONE [Concomitant]
     Active Substance: HYDROMORPHONE
     Route: 048
  16. HYDROXYUREA [Concomitant]
     Active Substance: HYDROXYUREA
     Indication: Thrombosis prophylaxis
     Route: 048
  17. LEVOFLOXACIN HEMIHYDRATE [Concomitant]
     Active Substance: LEVOFLOXACIN
     Indication: Infection prophylaxis
     Route: 048
  18. LEVOMEPROMAZINE [Concomitant]
     Active Substance: LEVOMEPROMAZINE
     Indication: Sleep disorder
     Route: 048
  19. ONDANSETRON HYDROCHLORIDE [Concomitant]
     Active Substance: ONDANSETRON HYDROCHLORIDE
     Indication: Nausea
     Route: 048
  20. PANTOPRAZOLE SODIUM [Concomitant]
     Active Substance: PANTOPRAZOLE SODIUM
     Indication: Gastrooesophageal reflux disease
     Route: 048
  21. PREDNISONE [Concomitant]
     Active Substance: PREDNISONE
     Indication: Paraneoplastic syndrome
     Route: 048
  22. PREDNISONE [Concomitant]
     Active Substance: PREDNISONE
     Indication: Muscular weakness
     Route: 048
  23. PREDNISONE [Concomitant]
     Active Substance: PREDNISONE
     Route: 048
  24. PREDNISONE [Concomitant]
     Active Substance: PREDNISONE
     Route: 048
  25. PREDNISONE [Concomitant]
     Active Substance: PREDNISONE
     Route: 048
  26. PREDNISONE [Concomitant]
     Active Substance: PREDNISONE
     Route: 048
  27. PREDNISONE [Concomitant]
     Active Substance: PREDNISONE
     Route: 048
  28. PREDNISONE [Concomitant]
     Active Substance: PREDNISONE
     Route: 048
  29. RASBURICASE [Concomitant]
     Active Substance: RASBURICASE
     Indication: Prophylaxis
     Route: 042
  30. SEPTRA [Concomitant]
     Active Substance: SULFAMETHOXAZOLE\TRIMETHOPRIM
     Indication: Antifungal prophylaxis
     Route: 048
  31. VALACYCLOVIR HYDROCHLORIDE [Concomitant]
     Active Substance: VALACYCLOVIR HYDROCHLORIDE
     Indication: Infection prophylaxis
     Route: 048

REACTIONS (1)
  - Acute myeloid leukaemia [Fatal]
